FAERS Safety Report 9646555 (Version 2)
Quarter: 2013Q4

REPORT INFORMATION
  Report Type: Spontaneous
  Country: US (occurrence: US)
  Receive Date: 20131025
  Receipt Date: 20131025
  Transmission Date: 20140711
  Serious: Yes (Death)
  Sender: FDA-Public Use
  Company Number: US-ASTRAZENECA-2009SE23700

PATIENT
  Age: 66 Year
  Sex: Female

DRUGS (3)
  1. SYMBICORT PMDI [Suspect]
     Indication: CHRONIC OBSTRUCTIVE PULMONARY DISEASE
     Dosage: 160/4.5 MCG 2 PUFFS BID
     Route: 055
     Dates: start: 20091029
  2. IPATROPIUM BROMIDE [Concomitant]
  3. SIX OTHER MEDICATIONS [Concomitant]

REACTIONS (3)
  - Death [Fatal]
  - Asthma [Recovered/Resolved]
  - Headache [Unknown]
